FAERS Safety Report 15289837 (Version 1)
Quarter: 2018Q3

REPORT INFORMATION
  Report Type: Spontaneous
  Country: GB (occurrence: GB)
  Receive Date: 20180817
  Receipt Date: 20180817
  Transmission Date: 20181010
  Serious: Yes (Other)
  Sender: FDA-Public Use
  Company Number: GB-009507513-2008-180068-NL

PATIENT
  Sex: Female

DRUGS (2)
  1. IMPLANON [Suspect]
     Active Substance: ETONOGESTREL
     Dosage: CONTINUING: UNK
     Route: 065
     Dates: start: 200711
  2. IMPLANON [Suspect]
     Active Substance: ETONOGESTREL
     Dosage: CONTINUING: UNK
     Dates: start: 2003, end: 2006

REACTIONS (2)
  - Abortion spontaneous [Unknown]
  - Pregnancy with implant contraceptive [Unknown]

NARRATIVE: CASE EVENT DATE: 200801
